FAERS Safety Report 5006209-0 (Version None)
Quarter: 2006Q2

REPORT INFORMATION
  Report Type: 
  Country: None (occurrence: None)
  Receive Date: 20060518
  Receipt Date: 20060510
  Transmission Date: 20061013
  Serious: Yes (Hospitalization, Other)
  Sender: FDA-Public Use
  Company Number: US-JNJFOC-20060105128

PATIENT
  Sex: Male
  Weight: 53.07 kg

DRUGS (8)
  1. REMICADE [Suspect]
     Route: 042
  2. REMICADE [Suspect]
     Route: 042
  3. REMICADE [Suspect]
     Route: 042
  4. REMICADE [Suspect]
     Indication: CROHN'S DISEASE
     Route: 042
  5. MERCAPTOPURINE [Concomitant]
     Indication: CROHN'S DISEASE
  6. ANTISPASMOTIC [Concomitant]
     Indication: CROHN'S DISEASE
  7. BUDESONIDE [Concomitant]
     Indication: CROHN'S DISEASE
  8. PREDNISONE TAB [Concomitant]
     Indication: CROHN'S DISEASE

REACTIONS (1)
  - HEPATIC NEOPLASM MALIGNANT [None]
